FAERS Safety Report 19514091 (Version 1)
Quarter: 2021Q3

REPORT INFORMATION
  Report Type: Spontaneous
  Country: BR (occurrence: BR)
  Receive Date: 20210709
  Receipt Date: 20210709
  Transmission Date: 20211014
  Serious: Yes (Other)
  Sender: FDA-Public Use
  Company Number: BR-HQ SPECIALTY-BR-2021INT000109

PATIENT
  Sex: Female

DRUGS (4)
  1. CISPLATIN. [Suspect]
     Active Substance: CISPLATIN
     Indication: CERVIX CARCINOMA
     Dosage: 40 MG/M2 (MAXIMUM DOSE, 70MG), ADMINISTERED ON DAYS 1,8,15,22, AND 29 DURING TELETHERAPY
     Route: 042
  2. RADIOTHERAPY [Suspect]
     Active Substance: RADIATION THERAPY
     Indication: CERVIX CARCINOMA
     Dosage: 4500CENTIGRAYS DIVIDED INTO 25 DAILY FRACTIONS FOR 5 DAYS PER WEEK
  3. ERLOTINIB [Suspect]
     Active Substance: ERLOTINIB
     Indication: CHEMOTHERAPY SIDE EFFECT PROPHYLAXIS
     Dosage: 150 MG, QD, 1 WEEK BEFORE CRT
     Route: 048
  4. RADIOTHERAPY [Suspect]
     Active Substance: RADIATION THERAPY
     Dosage: 600 CENTIGRAYS AT 1 WEEK INTERVALS

REACTIONS (2)
  - Intestinal fistula [Unknown]
  - Vaginal fistula [Unknown]
